FAERS Safety Report 8866078 (Version 1)
Quarter: 2012Q4

REPORT INFORMATION
  Report Type: 
  Country: US (occurrence: US)
  Receive Date: 20121025
  Receipt Date: 20121025
  Transmission Date: 20130627
  Serious: Yes (Other)
  Sender: FDA-Public Use
  Company Number: US-ROCHE-1133070

PATIENT
  Sex: Male

DRUGS (2)
  1. RAPTIVA [Suspect]
     Indication: PSORIASIS
     Route: 065
  2. RAPTIVA [Suspect]
     Indication: PUSTULAR PSORIASIS

REACTIONS (7)
  - Convulsion [Unknown]
  - Dyspnoea [Unknown]
  - Feeling cold [Unknown]
  - Headache [Unknown]
  - Pruritus [Unknown]
  - Skin fissures [Unknown]
  - Pain [Unknown]
